FAERS Safety Report 19190569 (Version 1)
Quarter: 2021Q2

REPORT INFORMATION
  Report Type: Report from Study
  Country: EG (occurrence: EG)
  Receive Date: 20210428
  Receipt Date: 20210428
  Transmission Date: 20210717
  Serious: Yes (Other)
  Sender: FDA-Public Use
  Company Number: NVSC2021EG092945

PATIENT
  Age: 10 Year
  Sex: Male

DRUGS (4)
  1. OMNITROPE [Suspect]
     Active Substance: SOMATROPIN
     Indication: GROWTH HORMONE DEFICIENCY
     Dosage: UNK
     Route: 058
     Dates: start: 20201129
  2. FERROGLOBIN [Concomitant]
     Indication: PRODUCT USED FOR UNKNOWN INDICATION
     Dosage: 5CM/DAY (FINISHED THREE MONTHS AGO)
     Route: 065
     Dates: start: 20210403
  3. CALCIUM [Concomitant]
     Active Substance: CALCIUM
     Indication: PRODUCT USED FOR UNKNOWN INDICATION
     Dosage: 5CM/DAY (FINISHED THREE MONTHS)
     Route: 065
     Dates: start: 20210403
  4. VIDROP [Concomitant]
     Indication: PRODUCT USED FOR UNKNOWN INDICATION
     Dosage: UNK, QD (FULL DROP SIZE)
     Route: 065
     Dates: start: 20210403

REACTIONS (3)
  - Multiple use of single-use product [Recovered/Resolved]
  - Wrong technique in product usage process [Unknown]
  - Product dose omission issue [Not Recovered/Not Resolved]

NARRATIVE: CASE EVENT DATE: 20201129
